FAERS Safety Report 4455979-9 (Version None)
Quarter: 2004Q3

REPORT INFORMATION
  Report Type: 
  Country: None (occurrence: None)
  Receive Date: 20040922
  Receipt Date: 20040901
  Transmission Date: 20050211
  Serious: Yes (Other)
  Sender: FDA-Public Use
  Company Number: JP-GLAXOSMITHKLINE-B0345286A

PATIENT
  Age: 70 Year
  Sex: Male
  Weight: 62 kg

DRUGS (7)
  1. MODACIN [Suspect]
     Indication: C-REACTIVE PROTEIN INCREASED
     Dosage: 2G PER DAY
     Route: 042
     Dates: start: 20040512, end: 20040515
  2. NORVASC [Concomitant]
     Route: 048
  3. MICARDIS [Concomitant]
     Route: 048
  4. GASTER [Concomitant]
     Route: 048
  5. SODIUM CHLORIDE INJ [Concomitant]
     Route: 065
  6. KLARICID [Concomitant]
     Route: 048
  7. BIOFERMIN R [Concomitant]
     Route: 048

REACTIONS (3)
  - EXANTHEM [None]
  - GENERALISED ERYTHEMA [None]
  - STAPHYLOCOCCAL INFECTION [None]
